FAERS Safety Report 17773319 (Version 1)
Quarter: 2020Q2

REPORT INFORMATION
  Report Type: Report from Study
  Country: US (occurrence: US)
  Receive Date: 20200512
  Receipt Date: 20200512
  Transmission Date: 20200714
  Serious: Yes (Hospitalization)
  Sender: FDA-Public Use
  Company Number: NVSC2020US126591

PATIENT
  Age: 52 Year
  Sex: Female

DRUGS (1)
  1. ENTRESTO [Suspect]
     Active Substance: SACUBITRIL\VALSARTAN
     Indication: CARDIAC FAILURE
     Dosage: 50 MG, BID (24/26 MG)
     Route: 065
     Dates: start: 202001

REACTIONS (4)
  - Fatigue [Unknown]
  - Weight increased [Unknown]
  - Swelling [Recovering/Resolving]
  - Fluid retention [Recovering/Resolving]

NARRATIVE: CASE EVENT DATE: 202001
